FAERS Safety Report 4615100-0 (Version None)
Quarter: 2005Q1

REPORT INFORMATION
  Report Type: 
  Country: None (occurrence: None)
  Receive Date: 20050322
  Receipt Date: 20050315
  Transmission Date: 20050727
  Serious: Yes (Other)
  Sender: FDA-Public Use
  Company Number: US-MERCK-0503USA03270

PATIENT
  Sex: Male

DRUGS (1)
  1. VIOXX [Suspect]
     Route: 048

REACTIONS (9)
  - ADVERSE EVENT [None]
  - CARDIAC FAILURE [None]
  - CEREBROVASCULAR ACCIDENT [None]
  - CHEST PAIN [None]
  - HEPATOCELLULAR DAMAGE [None]
  - MYOCARDIAL INFARCTION [None]
  - RENAL DISORDER [None]
  - THROMBOSIS [None]
  - ULCER [None]
